FAERS Safety Report 9311980 (Version 1)
Quarter: 2013Q2

REPORT INFORMATION
  Report Type: Report from Study
  Country: NL (occurrence: NL)
  Receive Date: 20130528
  Receipt Date: 20130528
  Transmission Date: 20140414
  Serious: Yes (Death, Other)
  Sender: FDA-Public Use
  Company Number: PHHY2013NL006593

PATIENT
  Sex: Male

DRUGS (5)
  1. ZOMETA [Suspect]
     Indication: PROSTATE CANCER METASTATIC
     Dosage: 4 MG PER 100 ML ONCE PER 4 WEEKS
     Route: 042
  2. ZOMETA [Suspect]
     Dosage: 4 MG PER 100 ML ONCE PER 4 WEEKS
     Route: 042
     Dates: start: 20080222
  3. ZOMETA [Suspect]
     Dosage: 4 MG PER 100 ML ONCE PER 4 WEEKS
     Route: 042
     Dates: start: 20121227
  4. ZOMETA [Suspect]
     Dosage: 4 MG PER 100 ML ONCE PER 4 WEEKS
     Route: 042
     Dates: start: 20120820
  5. ZOMETA [Suspect]
     Dosage: 4 MG PER 100 ML ONCE PER 4 WEEKS
     Route: 042
     Dates: start: 20130502

REACTIONS (3)
  - Prostate cancer metastatic [Fatal]
  - Metastasis [Not Recovered/Not Resolved]
  - General physical health deterioration [Unknown]
